FAERS Safety Report 10139284 (Version 2)
Quarter: 2014Q2

REPORT INFORMATION
  Report Type: Report from Study
  Country: PL (occurrence: PL)
  Receive Date: 20140429
  Receipt Date: 20140617
  Transmission Date: 20141212
  Serious: Yes (Life-Threatening)
  Sender: FDA-Public Use
  Company Number: PL-CELGENEUS-129-21880-14043396

PATIENT
  Age: 53 Year
  Sex: Female
  Weight: 67 kg

DRUGS (12)
  1. REVLIMID [Suspect]
     Indication: PLASMA CELL MYELOMA
     Dosage: 25 MILLIGRAM
     Route: 048
     Dates: start: 20111129, end: 20111219
  2. REVLIMID [Suspect]
     Dosage: 25 MILLIGRAM
     Route: 048
     Dates: start: 20140318, end: 20140407
  3. REVLIMID [Suspect]
     Dosage: 25 MILLIGRAM
     Route: 048
     Dates: start: 20140422, end: 20140505
  4. DEXAMETHASONE [Suspect]
     Indication: PLASMA CELL MYELOMA
     Route: 065
     Dates: start: 20100226, end: 20110117
  5. DEXAMETHASONE [Suspect]
     Route: 065
     Dates: start: 20110118, end: 20110408
  6. DEXAMETHASONE [Suspect]
     Route: 065
     Dates: start: 20110702, end: 20110921
  7. DEXAMETHASONE [Suspect]
     Dosage: 40 MILLIGRAM
     Route: 065
     Dates: start: 20111129, end: 20111220
  8. DEXAMETHASONE [Suspect]
     Dosage: 40 MILLIGRAM
     Route: 065
     Dates: start: 20140318, end: 20140408
  9. DEXAMETHASONE [Suspect]
     Dosage: 40 MILLIGRAM
     Route: 065
     Dates: start: 20140422, end: 20140506
  10. ASPIRINE [Concomitant]
     Indication: ANTICOAGULANT THERAPY
     Dosage: 100 MILLIGRAM
     Route: 048
     Dates: start: 20111128
  11. GENTAMICIN [Concomitant]
     Indication: LARYNGITIS
     Dosage: 160 MILLIGRAM
     Route: 048
     Dates: start: 20140414, end: 20140419
  12. LANZUL [Concomitant]
     Indication: GASTRITIS PROPHYLAXIS
     Dosage: 30 MILLIGRAM
     Route: 048
     Dates: start: 20111128

REACTIONS (1)
  - Neutropenia [Recovered/Resolved]
